FAERS Safety Report 5786027-6 (Version None)
Quarter: 2008Q2

REPORT INFORMATION
  Report Type: 
  Country: None (occurrence: None)
  Receive Date: 20080624
  Receipt Date: 20070524
  Transmission Date: 20081010
  Serious: No
  Sender: FDA-Public Use
  Company Number: US-ASTRAZENECA-2007UW12936

PATIENT
  Age: 5 Year
  Sex: Male

DRUGS (3)
  1. PULMICORT RESPULES [Suspect]
     Indication: ASTHMA
     Route: 055
     Dates: start: 20060101
  2. PULMICORT RESPULES [Suspect]
     Indication: HYPERSENSITIVITY
     Route: 055
     Dates: start: 20060101
  3. ZYRTEC [Concomitant]

REACTIONS (2)
  - VISION BLURRED [None]
  - VISUAL DISTURBANCE [None]
